FAERS Safety Report 4630226-3 (Version None)
Quarter: 2005Q2

REPORT INFORMATION
  Report Type: 
  Country: None (occurrence: None)
  Receive Date: 20050406
  Receipt Date: 20050321
  Transmission Date: 20051028
  Serious: Yes (Other)
  Sender: FDA-Public Use
  Company Number: 05-000078

PATIENT
  Age: 34 Year
  Sex: Female

DRUGS (3)
  1. DURICEF [Suspect]
     Indication: NASOPHARYNGITIS
     Dosage: 250 MG, TID, ORAL
     Route: 048
     Dates: start: 20050113, end: 20050113
  2. LOXONIN (LOXOPROFEN SODIUM) [Concomitant]
  3. MEDICON (DEXTROMETHORPHAN HYDROBROMIDE) [Concomitant]

REACTIONS (1)
  - ANAPHYLACTIC SHOCK [None]
